FAERS Safety Report 5496569-9 (Version None)
Quarter: 2007Q4

REPORT INFORMATION
  Report Type: 
  Country: None (occurrence: None)
  Receive Date: 20071025
  Receipt Date: 20070618
  Transmission Date: 20080405
  Serious: No
  Sender: FDA-Public Use
  Company Number: A0657218A

PATIENT
  Age: 67 Year
  Sex: Male

DRUGS (13)
  1. ADVAIR DISKUS 100/50 [Suspect]
     Indication: CHRONIC OBSTRUCTIVE PULMONARY DISEASE
     Dosage: 1PUFF TWICE PER DAY
     Route: 055
  2. PROTONIX [Concomitant]
  3. REGLAN [Concomitant]
  4. CARAFATE [Concomitant]
  5. LOPRESSOR [Concomitant]
  6. ZOCOR [Concomitant]
  7. PLAVIX [Concomitant]
  8. DIOVAN HCT [Concomitant]
  9. GLYBURIDE [Concomitant]
  10. ASACOL [Concomitant]
  11. FLONASE [Concomitant]
  12. ZANTAC [Concomitant]
  13. METFORMIN [Concomitant]

REACTIONS (1)
  - DRUG INEFFECTIVE [None]
